FAERS Safety Report 6260904-4 (Version None)
Quarter: 2009Q3

REPORT INFORMATION
  Report Type: 
  Country: None (occurrence: None)
  Receive Date: 20090709
  Receipt Date: 20070905
  Transmission Date: 20100115
  Serious: Yes (Other)
  Sender: FDA-Public Use
  Company Number: US-ASTRAZENECA-2006UW08302

PATIENT
  Age: 17607 Day
  Sex: Female

DRUGS (9)
  1. SEROQUEL [Suspect]
     Indication: HALLUCINATION, AUDITORY
     Dosage: 25 MG 2 AT NIGHT TO 100 MG 1 QAM, 2 QHS
     Route: 048
     Dates: start: 19990410
  2. SEROQUEL [Suspect]
     Route: 048
     Dates: start: 20030701
  3. ABILIFY [Concomitant]
  4. ACCOLATE [Concomitant]
     Route: 048
     Dates: start: 19990606
  5. CLONAZEPAM [Concomitant]
     Route: 048
     Dates: start: 19990619
  6. PAXIL [Concomitant]
     Route: 048
     Dates: start: 19990709
  7. FLURAZEPAM [Concomitant]
     Indication: SLEEP DISORDER
     Dosage: 1 HS PRN
     Route: 048
     Dates: start: 20000327
  8. REMERON [Concomitant]
     Route: 048
     Dates: start: 20000403
  9. FAMOTIDINE [Concomitant]
     Route: 048
     Dates: start: 20020327

REACTIONS (2)
  - DIABETES MELLITUS [None]
  - DIABETIC RETINOPATHY [None]
